FAERS Safety Report 23365852 (Version 1)
Quarter: 2024Q1

REPORT INFORMATION
  Report Type: Spontaneous
  Country: FR (occurrence: FR)
  Receive Date: 20240104
  Receipt Date: 20240104
  Transmission Date: 20240410
  Serious: Yes (Other)
  Sender: FDA-Public Use
  Company Number: FR-PFIZER INC-202300445307

PATIENT
  Sex: Female

DRUGS (3)
  1. NOXAFIL [Suspect]
     Active Substance: POSACONAZOLE
     Indication: Candida infection
     Dosage: UNK
     Dates: start: 2018
  2. VFEND [Suspect]
     Active Substance: VORICONAZOLE
     Indication: Candida infection
     Dosage: UNK
     Dates: start: 2018
  3. AMBISOME [Suspect]
     Active Substance: AMPHOTERICIN B
     Indication: Candida infection
     Dosage: TWO MONTHS OF INFUSION
     Dates: start: 2018

REACTIONS (1)
  - Drug ineffective [Unknown]
